FAERS Safety Report 23991196 (Version 1)
Quarter: 2024Q2

REPORT INFORMATION
  Report Type: Spontaneous
  Country: AT (occurrence: AT)
  Receive Date: 20240619
  Receipt Date: 20240619
  Transmission Date: 20240716
  Serious: Yes (Hospitalization)
  Sender: FDA-Public Use
  Company Number: AT-009507513-2406AUT003113

PATIENT
  Age: 43 Year
  Sex: Female

DRUGS (7)
  1. CARBOPLATIN [Suspect]
     Active Substance: CARBOPLATIN
     Indication: Breast neoplasm
     Dosage: PEMBROLIZUMAB/CARBOPLATIN/PACLITAXEL 4 CYCLES
     Dates: start: 202309, end: 202312
  2. ADRIAMYCIN [Suspect]
     Active Substance: DOXORUBICIN HYDROCHLORIDE
     Indication: Breast neoplasm
     Dosage: PEMBROLIZUMAB/ AC 4 CYCLES
     Dates: start: 202401
  3. CYTOXAN [Suspect]
     Active Substance: CYCLOPHOSPHAMIDE
     Indication: Breast neoplasm
     Dosage: PEMBROLIZUMAB/ AC 4 CYCLES
     Dates: start: 202401
  4. PEMBROLIZUMAB [Suspect]
     Active Substance: PEMBROLIZUMAB
     Dosage: PEMBROLIZUMAB/CARBOPLATIN/PACLITAXEL 4 CYCLES
     Dates: start: 202309, end: 202312
  5. PEMBROLIZUMAB [Suspect]
     Active Substance: PEMBROLIZUMAB
     Dosage: PEMBROLIZUMAB/ AC 4 CYCLES
     Dates: start: 202401, end: 2024
  6. PEMBROLIZUMAB [Suspect]
     Active Substance: PEMBROLIZUMAB
     Dosage: POSTNEOADJUVANT PEMBROLIZUMAB THERAPY ACCORDING TO THE PCR / AND THE GENETIC FINDINGS
     Dates: start: 2024
  7. PACLITAXEL [Suspect]
     Active Substance: PACLITAXEL
     Indication: Breast neoplasm
     Dosage: PEMBROLIZUMAB/CARBOPLATIN/PACLITAXEL 4 CYCLES

REACTIONS (7)
  - Febrile neutropenia [Recovered/Resolved]
  - Haemorrhoids [Unknown]
  - Anal fissure [Unknown]
  - Respiratory tract infection [Unknown]
  - Constipation [Unknown]
  - Epstein-Barr virus infection [Unknown]
  - Off label use [Unknown]

NARRATIVE: CASE EVENT DATE: 20240101
